FAERS Safety Report 11672149 (Version 1)
Quarter: 2015Q4

REPORT INFORMATION
  Report Type: Spontaneous
  Country: US (occurrence: US)
  Receive Date: 20151027
  Receipt Date: 20151027
  Transmission Date: 20160304
  Serious: No
  Sender: FDA-Public Use
  Company Number: US-ELI_LILLY_AND_COMPANY-US201004004096

PATIENT
  Age: 72 Year
  Sex: Female

DRUGS (3)
  1. FORTEO [Suspect]
     Active Substance: TERIPARATIDE
     Dosage: 20 UG, DAILY (1/D)
     Route: 065
     Dates: start: 20100510
  2. FORTEO [Suspect]
     Active Substance: TERIPARATIDE
     Indication: OSTEOPOROSIS
     Dosage: 20 UG, DAILY (1/D)
     Route: 065
  3. FORTEO [Suspect]
     Active Substance: TERIPARATIDE
     Dosage: 20 UG, DAILY (1/D)
     Dates: end: 20100610

REACTIONS (17)
  - Heart rate increased [Unknown]
  - Medication error [Unknown]
  - Arthralgia [Recovering/Resolving]
  - Nervousness [Unknown]
  - Pain in extremity [Unknown]
  - Poor quality sleep [Unknown]
  - Muscular weakness [Recovered/Resolved]
  - Irritability [Unknown]
  - Abnormal dreams [Unknown]
  - Feeling abnormal [Unknown]
  - Sluggishness [Unknown]
  - Increased appetite [Unknown]
  - Hypervigilance [Unknown]
  - Fatigue [Unknown]
  - Anxiety [Unknown]
  - Hunger [Unknown]
  - Headache [Unknown]

NARRATIVE: CASE EVENT DATE: 20100512
